FAERS Safety Report 5271825-8 (Version None)
Quarter: 2007Q1

REPORT INFORMATION
  Report Type: 
  Country: None (occurrence: None)
  Receive Date: 20070316
  Receipt Date: 20070228
  Transmission Date: 20070707
  Serious: Yes (Death)
  Sender: FDA-Public Use
  Company Number: 2007JP000892

PATIENT
  Age: 40 Year
  Sex: Male

DRUGS (3)
  1. PROGRAF [Suspect]
     Indication: BONE MARROW TRANSPLANT
  2. METHOTREXATE (METHOTREXATE SODIUM) [Concomitant]
  3. PREDNISOLONE [Concomitant]

REACTIONS (4)
  - ABDOMINAL DISTENSION [None]
  - HEPATITIS B VIRUS [None]
  - HEPATITIS FULMINANT [None]
  - OEDEMA PERIPHERAL [None]
